FAERS Safety Report 7630572 (Version 4)
Quarter: 2019Q3

REPORT INFORMATION
  Report Type: Spontaneous
  Country: FR (occurrence: FR)
  Receive Date: 20101015
  Receipt Date: 20190916
  Transmission Date: 20191005
  Serious: Yes (Hospitalization, Other)
  Sender: FDA-Public Use
  Company Number: FR-SANOFI-AVENTIS-2010SA062343

PATIENT
  Age: 69 Year
  Sex: Female
  Weight: 63 kg

DRUGS (14)
  1. CORTANCYL [Suspect]
     Active Substance: PREDNISONE
     Indication: RHEUMATOID ARTHRITIS
     Dosage: 5 MG,QD
     Route: 048
  2. CORTANCYL [Suspect]
     Active Substance: PREDNISONE
     Dosage: 1 DF
     Route: 048
  3. ACTONEL [Suspect]
     Active Substance: RISEDRONATE SODIUM
     Indication: OSTEOPOROSIS
     Dosage: UNK UNK,UNK
     Route: 048
     Dates: start: 200611, end: 2009
  4. DAFALGAN [Suspect]
     Active Substance: ACETAMINOPHEN
     Dosage: 1 DF, QD
     Route: 048
  5. ARAVA [Suspect]
     Active Substance: LEFLUNOMIDE
     Dosage: 1 DF
     Route: 048
  6. MABTHERA [Suspect]
     Active Substance: RITUXIMAB
     Indication: RHEUMATOID ARTHRITIS
     Dosage: 1000 MG, EVERY 2 WEEKS
     Route: 041
  7. OROCAL D3 [Suspect]
     Active Substance: CALCIUM CARBONATE\CHOLECALCIFEROL
     Indication: PRODUCT USED FOR UNKNOWN INDICATION
     Dosage: UNK UNK,QD
     Route: 048
  8. ZELTREX [Concomitant]
     Active Substance: VALACYCLOVIR HYDROCHLORIDE
     Indication: ORAL HERPES
     Dosage: 500 MG,BID
     Route: 048
     Dates: start: 20100820, end: 20100827
  9. OFLOCET [OFLOXACIN] [Concomitant]
     Active Substance: OFLOXACIN
     Indication: ORAL HERPES
     Dosage: 200 MG,BID
     Route: 048
     Dates: start: 20100820, end: 20100823
  10. ARAVA [Suspect]
     Active Substance: LEFLUNOMIDE
     Indication: RHEUMATOID ARTHRITIS
     Dosage: 20 MG,QD
     Route: 048
  11. METHOTREXATE. [Suspect]
     Active Substance: METHOTREXATE
     Indication: RHEUMATOID ARTHRITIS
  12. DAFALGAN [Suspect]
     Active Substance: ACETAMINOPHEN
     Indication: RHEUMATOID ARTHRITIS
     Dosage: UNK UNK,TID
  13. OESCLIM [Suspect]
     Active Substance: ESTRADIOL
     Indication: HORMONE REPLACEMENT THERAPY
     Dosage: 25 UG,/24 HRS
     Route: 062
  14. TAREG [Suspect]
     Active Substance: VALSARTAN
     Indication: HYPERTENSION
     Dosage: 80 MG,QD
     Route: 048

REACTIONS (8)
  - Periodontal disease [Unknown]
  - Oral herpes [Recovered/Resolved]
  - Herpes simplex [Unknown]
  - Osteonecrosis of jaw [Unknown]
  - Gingivitis ulcerative [Unknown]
  - Acute kidney injury [Unknown]
  - Necrosis [Unknown]
  - Gastroenteritis [Unknown]

NARRATIVE: CASE EVENT DATE: 201008
